FAERS Safety Report 5288414-1 (Version None)
Quarter: 2007Q2

REPORT INFORMATION
  Report Type: 
  Country: None (occurrence: None)
  Receive Date: 20070405
  Receipt Date: 20070327
  Transmission Date: 20071010
  Serious: Yes (Hospitalization)
  Sender: FDA-Public Use
  Company Number: SE-MERCK-0703SWE00071

PATIENT
  Age: 72 Year
  Sex: Female

DRUGS (7)
  1. VASOTEC [Suspect]
     Route: 048
  2. ZOCOR [Suspect]
     Route: 048
  3. METFORMIN [Suspect]
     Route: 065
  4. FOLIC ACID [Concomitant]
     Route: 065
  5. BENDROFLUMETHIAZIDE [Concomitant]
     Route: 065
  6. FUROSEMIDE [Concomitant]
     Route: 065
  7. GLYBURIDE [Concomitant]
     Route: 065

REACTIONS (2)
  - HAEMODIALYSIS [None]
  - LACTIC ACIDOSIS [None]
